FAERS Safety Report 10868406 (Version 3)
Quarter: 2015Q4

REPORT INFORMATION
  Report Type: Spontaneous
  Country: GR (occurrence: GR)
  Receive Date: 20150225
  Receipt Date: 20151001
  Transmission Date: 20160304
  Serious: Yes (Death, Hospitalization, Other)
  Sender: FDA-Public Use
  Company Number: GR-CELGENE-GRC-2015023141

PATIENT

DRUGS (2)
  1. AZACITIDINE INJECTABLE [Suspect]
     Active Substance: AZACITIDINE
     Indication: MYELODYSPLASTIC SYNDROME
     Route: 041
     Dates: start: 200901, end: 201405
  2. AZACITIDINE INJECTABLE [Suspect]
     Active Substance: AZACITIDINE
     Indication: ACUTE MYELOID LEUKAEMIA
     Route: 058
     Dates: start: 200901, end: 201405

REACTIONS (19)
  - Neutropenic infection [Unknown]
  - Septic shock [Unknown]
  - Pneumonia [Unknown]
  - Death [Unknown]
  - Arrhythmia [Fatal]
  - Cerebral haemorrhage [Fatal]
  - Haemorrhage [Fatal]
  - Pyoderma gangrenosum [Unknown]
  - Acute myeloid leukaemia [Unknown]
  - Neutropenia [Unknown]
  - Sepsis [Unknown]
  - Anaemia [Unknown]
  - Thrombocytopenia [Unknown]
  - Infection [Fatal]
  - Febrile neutropenia [Unknown]
  - Cytopenia [Unknown]
  - Leukopenia [Unknown]
  - Epistaxis [Unknown]
  - Lower respiratory tract infection [Unknown]
